FAERS Safety Report 25484693 (Version 1)
Quarter: 2025Q2

REPORT INFORMATION
  Report Type: Spontaneous
  Country: US (occurrence: None)
  Receive Date: 20250627
  Receipt Date: 20250627
  Transmission Date: 20250716
  Serious: No
  Sender: FDA-CTU
  Company Number: None

PATIENT
  Age: 50 Year
  Sex: Female
  Weight: 63 kg

DRUGS (1)
  1. NIACINAMIDE [Suspect]
     Active Substance: NIACINAMIDE
     Indication: Acne
     Dosage: 90 N\A  AT BEDTIME TOPICAL ?
     Route: 061
     Dates: start: 20250604, end: 20250611

REACTIONS (1)
  - Application site discolouration [None]

NARRATIVE: CASE EVENT DATE: 20250611
